FAERS Safety Report 8048758-7 (Version None)
Quarter: 2012Q1

REPORT INFORMATION
  Report Type: 
  Country: None (occurrence: None)
  Receive Date: 20120117
  Receipt Date: 20120109
  Transmission Date: 20120608
  Serious: Yes (Congenital Anomaly)
  Sender: FDA-Public Use
  Company Number: US-UCBSA-049406

PATIENT
  Sex: Male
  Weight: 3.43 kg

DRUGS (1)
  1. KEPPRA [Suspect]
     Indication: EPILEPSY
     Dosage: 3000 MG
     Route: 064
     Dates: end: 20100906

REACTIONS (2)
  - FOETAL EXPOSURE DURING PREGNANCY [None]
  - CRYPTORCHISM [None]
